FAERS Safety Report 6348517-7 (Version None)
Quarter: 2009Q3

REPORT INFORMATION
  Report Type: 
  Country: None (occurrence: None)
  Receive Date: 20090911
  Receipt Date: 20090902
  Transmission Date: 20100115
  Serious: Yes (Other)
  Sender: FDA-Public Use
  Company Number: US-JNJFOC-20090805530

PATIENT
  Age: 2 Year
  Sex: Male
  Weight: 11.79 kg

DRUGS (2)
  1. CHILDRENS TYLENOL [Suspect]
  2. CHILDRENS TYLENOL [Suspect]
     Indication: ACCIDENTAL EXPOSURE
     Dosage: ^THE WHOLE BOTTLE^

REACTIONS (1)
  - ACCIDENTAL DRUG INTAKE BY CHILD [None]
